FAERS Safety Report 5285844-9 (Version None)
Quarter: 2007Q1

REPORT INFORMATION
  Report Type: 
  Country: None (occurrence: None)
  Receive Date: 20070104
  Receipt Date: 20061101
  Transmission Date: 20070707
  Serious: No
  Sender: FDA-Public Use
  Company Number: BDI-008836

PATIENT
  Age: 60 Year
  Sex: Male
  Weight: 63.64 kg

DRUGS (3)
  1. MULTIHANCE [Suspect]
     Indication: LIVER DISORDER
     Dosage: 20 ML ONCE IV
     Route: 042
     Dates: start: 20061028, end: 20061028
  2. MULTIHANCE [Suspect]
     Indication: NUCLEAR MAGNETIC RESONANCE IMAGING
     Dosage: 20 ML ONCE IV
     Route: 042
     Dates: start: 20061028, end: 20061028
  3. INSULIN [Concomitant]

REACTIONS (1)
  - URTICARIA [None]
